FAERS Safety Report 26214791 (Version 1)
Quarter: 2025Q4

REPORT INFORMATION
  Report Type: Spontaneous
  Country: UY (occurrence: UY)
  Receive Date: 20251230
  Receipt Date: 20251230
  Transmission Date: 20260118
  Serious: No
  Sender: PFIZER
  Company Number: UY-PFIZER INC-202500251710

PATIENT

DRUGS (1)
  1. GENOTROPIN [Suspect]
     Active Substance: SOMATROPIN
     Dosage: 1.3 MG, DAILY (7 TIMES A WEEK)
     Dates: end: 20250731

REACTIONS (3)
  - Device mechanical issue [Unknown]
  - Device difficult to use [Unknown]
  - Poor quality device used [Unknown]
